FAERS Safety Report 16690391 (Version 1)
Quarter: 2019Q3

REPORT INFORMATION
  Report Type: Spontaneous
  Country: US (occurrence: US)
  Receive Date: 20190810
  Receipt Date: 20190810
  Transmission Date: 20191004
  Serious: Yes (Other)
  Sender: FDA-Public Use
  Company Number: US-ROCHE-2368491

PATIENT
  Sex: Female
  Weight: 65.83 kg

DRUGS (8)
  1. ACTEMRA [Suspect]
     Active Substance: TOCILIZUMAB
     Indication: TEMPORAL ARTERITIS
     Route: 058
     Dates: start: 201901
  2. ATORVASTATIN [Concomitant]
     Active Substance: ATORVASTATIN
     Route: 065
  3. LISINOPRIL. [Concomitant]
     Active Substance: LISINOPRIL
     Route: 065
  4. PREDNISONE. [Concomitant]
     Active Substance: PREDNISONE
     Route: 065
  5. CALCIUM [Concomitant]
     Active Substance: CALCIUM
     Route: 065
  6. ASPIRIN [ACETYLSALICYLIC ACID] [Concomitant]
     Active Substance: ASPIRIN
     Route: 065
  7. VITAMIN C [Concomitant]
     Active Substance: ASCORBIC ACID
     Route: 065
  8. ANTIGLAUCOMA PREPARATIONS AND MIOTICS [Concomitant]
     Active Substance: UNSPECIFIED INGREDIENT

REACTIONS (5)
  - Blood urine present [Unknown]
  - Urinary tract infection [Recovered/Resolved]
  - Pruritus [Not Recovered/Not Resolved]
  - Cerebral congestion [Not Recovered/Not Resolved]
  - Dry skin [Not Recovered/Not Resolved]
